FAERS Safety Report 4877392-2 (Version None)
Quarter: 2006Q1

REPORT INFORMATION
  Report Type: 
  Country: None (occurrence: None)
  Receive Date: 20060109
  Receipt Date: 20060109
  Transmission Date: 20060701
  Serious: Yes (Hospitalization)
  Sender: FDA-Public Use
  Company Number: None

PATIENT
  Age: 63 Year
  Sex: Female
  Weight: 62.3 kg

DRUGS (1)
  1. AMIFOSTINE [Suspect]
     Indication: NEOPLASM
     Dosage: SEE IMAGE
     Route: 058
     Dates: start: 20051221

REACTIONS (9)
  - ABASIA [None]
  - MONARTHRITIS [None]
  - NEUROPATHY [None]
  - NEUROPATHY PERIPHERAL [None]
  - OEDEMA PERIPHERAL [None]
  - PAIN [None]
  - PURULENT DISCHARGE [None]
  - STAPHYLOCOCCAL INFECTION [None]
  - WHITE BLOOD CELL COUNT INCREASED [None]
